FAERS Safety Report 11829370 (Version 2)
Quarter: 2015Q4

REPORT INFORMATION
  Report Type: Report from Study
  Country: BR (occurrence: BR)
  Receive Date: 20151211
  Receipt Date: 20151222
  Transmission Date: 20160305
  Serious: Yes (Hospitalization, Other)
  Sender: FDA-Public Use
  Company Number: BR-BAXALTA-2015BLT003158

PATIENT
  Age: 7 Year
  Sex: Male
  Weight: 23 kg

DRUGS (1)
  1. FEIBA [Suspect]
     Active Substance: ANTI-INHIBITOR COAGULANT COMPLEX
     Indication: HAEMORRHAGE
     Dosage: 2000 IU, UNK
     Route: 065
     Dates: start: 2009

REACTIONS (6)
  - Mouth haemorrhage [Recovered/Resolved]
  - Mouth injury [Recovered/Resolved]
  - Malaise [Recovered/Resolved]
  - Gingival bleeding [Recovered/Resolved]
  - Fall [Unknown]
  - Traumatic haemorrhage [Recovered/Resolved]

NARRATIVE: CASE EVENT DATE: 20151128
